FAERS Safety Report 15470390 (Version 1)
Quarter: 2018Q4

REPORT INFORMATION
  Report Type: Spontaneous
  Country: US (occurrence: US)
  Receive Date: 20181005
  Receipt Date: 20181005
  Transmission Date: 20190205
  Serious: Yes (Other)
  Sender: FDA-Public Use
  Company Number: US-TAKEDA-2018TUS029186

PATIENT

DRUGS (1)
  1. ULORIC [Suspect]
     Active Substance: FEBUXOSTAT
     Indication: GOUT
     Dosage: UNK
     Route: 048
     Dates: start: 2009, end: 2017

REACTIONS (6)
  - End stage renal disease [Unknown]
  - Dyspnoea [Unknown]
  - Haemorrhagic anaemia [Unknown]
  - Gout [Unknown]
  - Fluid overload [Unknown]
  - Acute kidney injury [Unknown]
